FAERS Safety Report 10606690 (Version 1)
Quarter: 2014Q4

REPORT INFORMATION
  Report Type: Spontaneous
  Country: US (occurrence: None)
  Receive Date: 20141124
  Receipt Date: 20141124
  Transmission Date: 20150529
  Serious: Yes (Other)
  Sender: FDA-Public Use
  Company Number: None

PATIENT
  Age: 66 Year
  Sex: Female
  Weight: 68.95 kg

DRUGS (1)
  1. AMPHETAMINE SALTS [Suspect]
     Active Substance: AMPHETAMINE ASPARTATE\AMPHETAMINE SULFATE\DEXTROAMPHETAMINE SACCHARATE\DEXTROAMPHETAMINE SULFATE
     Indication: ATTENTION DEFICIT/HYPERACTIVITY DISORDER
     Dosage: 2X DAY  TWICE DAILY TAKEN BY MOUTH??MONTHLY
     Route: 048

REACTIONS (8)
  - Chills [None]
  - Disturbance in attention [None]
  - Restlessness [None]
  - Headache [None]
  - Abdominal pain upper [None]
  - Product substitution issue [None]
  - Product quality issue [None]
  - Impaired work ability [None]

NARRATIVE: CASE EVENT DATE: 20141113
